FAERS Safety Report 8908084 (Version 1)
Quarter: 2012Q4

REPORT INFORMATION
  Report Type: 
  Country: US (occurrence: US)
  Receive Date: 20121113
  Receipt Date: 20121113
  Transmission Date: 20130627
  Serious: No
  Sender: FDA-Public Use
  Company Number: US-009507513-1211USA003312

PATIENT
  Age: 60 Year
  Sex: Male

DRUGS (1)
  1. EMEND FOR INJECTION [Suspect]
     Indication: NAUSEA
     Dosage: 150 mg/ frequence undisclosed

REACTIONS (3)
  - Feeling hot [Recovered/Resolved]
  - Blood pressure increased [Recovered/Resolved]
  - Flushing [Recovered/Resolved]
